FAERS Safety Report 15821626 (Version 1)
Quarter: 2019Q1

REPORT INFORMATION
  Report Type: Spontaneous
  Country: US (occurrence: US)
  Receive Date: 20190113
  Receipt Date: 20190113
  Transmission Date: 20190417
  Serious: Yes (Hospitalization)
  Sender: FDA-Public Use
  Company Number: None

PATIENT
  Age: 83 Year
  Sex: Male
  Weight: 100.9 kg

DRUGS (9)
  1. DILTIAZEM. [Concomitant]
     Active Substance: DILTIAZEM
     Dates: start: 20140624
  2. FUROSEMIDE. [Concomitant]
     Active Substance: FUROSEMIDE
     Dates: start: 20140624
  3. LANTUS [Concomitant]
     Active Substance: INSULIN GLARGINE
     Dates: start: 20140624
  4. DOXAZOSIN [Concomitant]
     Active Substance: DOXAZOSIN\DOXAZOSIN MESYLATE
     Dates: start: 20180104
  5. SUNITINIB [Suspect]
     Active Substance: SUNITINIB
     Indication: GASTROINTESTINAL STROMAL TUMOUR
     Route: 048
     Dates: start: 20181226, end: 20190111
  6. WARFARIN [Concomitant]
     Active Substance: WARFARIN
     Dates: start: 20140624
  7. ATORVASTATIN [Concomitant]
     Active Substance: ATORVASTATIN
     Dates: start: 20140624
  8. HUMALOG [Concomitant]
     Active Substance: INSULIN LISPRO
     Dates: start: 20181031
  9. FERROUS SULFATE. [Concomitant]
     Active Substance: FERROUS SULFATE
     Dates: start: 20140624

REACTIONS (3)
  - Pneumonia [None]
  - Haemoptysis [None]
  - Jaundice [None]

NARRATIVE: CASE EVENT DATE: 20190112
